FAERS Safety Report 5716985-7 (Version None)
Quarter: 2008Q2

REPORT INFORMATION
  Report Type: 
  Country: None (occurrence: None)
  Receive Date: 20080424
  Receipt Date: 20080415
  Transmission Date: 20081010
  Serious: Yes (Hospitalization)
  Sender: FDA-Public Use
  Company Number: FR-PFIZER INC-2008033794

PATIENT
  Age: 80 Year
  Sex: Male
  Weight: 109 kg

DRUGS (5)
  1. ATORVASTATIN CALCIUM [Suspect]
     Dosage: FREQ:1DF DAILY
     Route: 048
     Dates: start: 20071107, end: 20071222
  2. CLARITHROMYCIN [Interacting]
     Indication: LUNG INFECTION
     Route: 048
     Dates: start: 20071215, end: 20071222
  3. PREVISCAN [Interacting]
     Indication: AORTIC VALVE DISEASE
     Dosage: FREQ:DAILY
     Route: 048
  4. AMLOR [Concomitant]
  5. RAMIPRIL/HYDROCHLOROTHIAZIDE [Concomitant]

REACTIONS (2)
  - DRUG INTERACTION [None]
  - INTERNATIONAL NORMALISED RATIO INCREASED [None]
